FAERS Safety Report 16800529 (Version 1)
Quarter: 2019Q3

REPORT INFORMATION
  Report Type: Spontaneous
  Country: US (occurrence: US)
  Receive Date: 20190723
  Receipt Date: 20190723
  Transmission Date: 20191005
  Serious: Yes (Death)
  Sender: FDA-Public Use
  Company Number: None

PATIENT
  Age: 37 Year
  Sex: Female

DRUGS (6)
  1. LEVETIRACETA [Concomitant]
  2. TECENTRIQ [Suspect]
     Active Substance: ATEZOLIZUMAB
     Indication: BREAST CANCER
     Dosage: ?          OTHER FREQUENCY:DAY 1+DAY15/28 DAY;?
     Route: 042
     Dates: start: 20190530
  3. GABAPENTIN. [Concomitant]
     Active Substance: GABAPENTIN
  4. FENTANYL. [Concomitant]
     Active Substance: FENTANYL
  5. FOLIC ACID. [Concomitant]
     Active Substance: FOLIC ACID
  6. SERTRALINE [Concomitant]
     Active Substance: SERTRALINE HYDROCHLORIDE

REACTIONS (1)
  - Death [None]
